FAERS Safety Report 24696755 (Version 3)
Quarter: 2024Q4

REPORT INFORMATION
  Report Type: Report from Study
  Country: CH (occurrence: CH)
  Receive Date: 20241204
  Receipt Date: 20241210
  Transmission Date: 20250115
  Serious: Yes (Hospitalization)
  Sender: ABBVIE
  Company Number: CH-ABBVIE-6027696

PATIENT
  Age: 74 Year
  Sex: Male

DRUGS (4)
  1. CARBIDOPA\LEVODOPA [Suspect]
     Active Substance: CARBIDOPA\LEVODOPA
     Indication: Parkinson^s disease
     Dosage: MD: 3.0 ML, CRD: 2.5 ML/H, CRN: 1.0 ML/H, ED: 1.0 ML,?FREQUENCY TEXT: 24H THERAPY
     Route: 050
     Dates: start: 20241121, end: 20241123
  2. CARBIDOPA\LEVODOPA [Suspect]
     Active Substance: CARBIDOPA\LEVODOPA
     Dosage: MD: 6.0 ML, CRD: 2.9 ML/H, CRN: 1.7 ML/H, ED: 1.0 ML?FREQUENCY TEXT: 24H THERAPY
     Route: 050
     Dates: start: 20241202
  3. CARBIDOPA\LEVODOPA [Suspect]
     Active Substance: CARBIDOPA\LEVODOPA
     Dosage: MD: 6.0 ML, CRD: 2.5 ML/H, CRN: 1.5 ML/H, ED: 1.0 ML?FREQUENCY TEXT: 24H THERAPY
     Route: 050
     Dates: start: 20241128, end: 20241129
  4. CARBIDOPA\LEVODOPA [Suspect]
     Active Substance: CARBIDOPA\LEVODOPA
     Dosage: MD: 6.0 ML, CRD: 2.7 ML/H, CRN: 1.7 ML/H, ED: 1.0 ML?FREQUENCY TEXT: 24H THERAPY
     Route: 050
     Dates: start: 20241130, end: 20241202

REACTIONS (6)
  - Intentional medical device removal by patient [Not Recovered/Not Resolved]
  - Memory impairment [Not Recovered/Not Resolved]
  - Dyskinesia [Recovering/Resolving]
  - Bradykinesia [Not Recovered/Not Resolved]
  - Family stress [Recovered/Resolved]
  - Emotional distress [Recovered/Resolved]

NARRATIVE: CASE EVENT DATE: 20241101
